FAERS Safety Report 7328255-4 (Version None)
Quarter: 2011Q1

REPORT INFORMATION
  Report Type: 
  Country: None (occurrence: None)
  Receive Date: 20110303
  Receipt Date: 20110217
  Transmission Date: 20110831
  Serious: Yes (Hospitalization, Other)
  Sender: FDA-Public Use
  Company Number: US-RANBAXY-2011RR-42120

PATIENT
  Sex: Male
  Weight: 70 kg

DRUGS (2)
  1. LEVAQUIN [Suspect]
     Indication: INFECTION
     Dosage: 250 MG, QD
     Route: 048
     Dates: start: 20060311, end: 20060326
  2. CIPROFLOXACIN [Suspect]
     Indication: INFECTION
     Route: 065

REACTIONS (2)
  - TENOSYNOVITIS STENOSANS [None]
  - DEPRESSION [None]
